FAERS Safety Report 6456596-1 (Version None)
Quarter: 2009Q4

REPORT INFORMATION
  Report Type: 
  Country: None (occurrence: None)
  Receive Date: 20091124
  Receipt Date: 20091124
  Transmission Date: 20100525
  Serious: Yes (Hospitalization)
  Sender: FDA-Public Use
  Company Number: None

PATIENT
  Age: 83 Year
  Sex: Male
  Weight: 61.2 kg

DRUGS (2)
  1. SIMVASTATIN [Suspect]
     Indication: HYPERLIPIDAEMIA
     Dosage: 80 MG HS PO
     Route: 048
     Dates: start: 20080929, end: 20091116
  2. NIACIN [Suspect]
     Indication: HYPERLIPIDAEMIA
     Dosage: 1500 MG EVERY DAY PO
     Route: 048
     Dates: start: 20091001, end: 20091116

REACTIONS (2)
  - HEPATOCELLULAR INJURY [None]
  - RHABDOMYOLYSIS [None]
